FAERS Safety Report 9498994 (Version 5)
Quarter: 2014Q2

REPORT INFORMATION
  Report Type: Spontaneous
  Country: US (occurrence: US)
  Receive Date: 20130904
  Receipt Date: 20140616
  Transmission Date: 20141212
  Serious: Yes (Other)
  Sender: FDA-Public Use
  Company Number: US-TEVA-427004USA

PATIENT
  Sex: Female

DRUGS (11)
  1. NUVIGIL [Suspect]
     Indication: SLEEP APNOEA SYNDROME
  2. NUVIGIL [Interacting]
     Indication: ASTHENIA
  3. RANITIDINE [Interacting]
     Dosage: 600 MILLIGRAM DAILY;
  4. OMEPRAZOLE [Interacting]
  5. ANTIBIOTICS [Suspect]
  6. MORPHINE SULFATE [Suspect]
  7. METHADONE [Concomitant]
     Indication: PAIN MANAGEMENT
  8. DOMPERIDONE [Concomitant]
     Indication: GASTROINTESTINAL MOTILITY DISORDER
  9. ROBAXIN [Concomitant]
     Indication: MUSCLE SPASMS
  10. ANTIVERT [Concomitant]
     Indication: VERTIGO
  11. TYLENOL [Concomitant]
     Indication: BREAKTHROUGH PAIN

REACTIONS (15)
  - Serotonin syndrome [Unknown]
  - Gastrointestinal motility disorder [Unknown]
  - Drug interaction [Unknown]
  - Nausea [Unknown]
  - Abdominal discomfort [Unknown]
  - Drug effect decreased [Recovered/Resolved]
  - Pain [Unknown]
  - Drug dose omission [Unknown]
  - Colonoscopy [Recovering/Resolving]
  - Cough [Unknown]
  - Dysphonia [Unknown]
  - Weight decreased [Unknown]
  - Insomnia [Unknown]
  - Insomnia [Recovering/Resolving]
  - Adverse event [Unknown]
